FAERS Safety Report 21788993 (Version 1)
Quarter: 2022Q4

REPORT INFORMATION
  Report Type: Spontaneous
  Country: US (occurrence: None)
  Receive Date: 20221227
  Receipt Date: 20221227
  Transmission Date: 20230113
  Serious: Yes (Death, Hospitalization)
  Sender: FDA-Public Use
  Company Number: None

PATIENT
  Age: 59 Year
  Sex: Female
  Weight: 74.2 kg

DRUGS (12)
  1. YESCARTA [Suspect]
     Active Substance: AXICABTAGENE CILOLEUCEL
     Dosage: OTHER FREQUENCY : ONCE;?
     Route: 041
     Dates: start: 20220830
  2. ACTEMRA [Concomitant]
     Active Substance: TOCILIZUMAB
     Dates: start: 20220907, end: 20220909
  3. anakinra (Kineret) [Concomitant]
     Dates: start: 20220908, end: 20220930
  4. dexAMETHasone (Decadron) injection [Concomitant]
     Dates: start: 20220906, end: 20221009
  5. NOREPINEPHRINE [Concomitant]
     Active Substance: NOREPINEPHRINE
     Dates: start: 20220909, end: 20221007
  6. vasopressin (Vasostrict) [Concomitant]
     Dates: start: 20221002, end: 20221008
  7. KEPPRA [Concomitant]
     Active Substance: LEVETIRACETAM
     Dates: start: 20220830, end: 20221002
  8. lacosamide (Vimpat) [Concomitant]
     Dates: start: 20220921, end: 20221008
  9. ZOSYN [Concomitant]
     Active Substance: PIPERACILLIN SODIUM\TAZOBACTAM SODIUM
     Dates: start: 20220905, end: 20221008
  10. filgrastim (Granix) [Concomitant]
     Dates: start: 20220829, end: 20221008
  11. MEROPENEM [Concomitant]
     Active Substance: MEROPENEM
     Dates: start: 20220908, end: 20220914
  12. VANCOMYCIN [Concomitant]
     Active Substance: VANCOMYCIN
     Dates: start: 20220908, end: 20220911

REACTIONS (11)
  - Cytokine release syndrome [None]
  - Immune effector cell-associated neurotoxicity syndrome [None]
  - Epilepsy [None]
  - Hypertension [None]
  - Posterior reversible encephalopathy syndrome [None]
  - Small intestinal perforation [None]
  - Pneumoperitoneum [None]
  - Shock [None]
  - Respiratory failure [None]
  - Klebsiella infection [None]
  - Sepsis [None]

NARRATIVE: CASE EVENT DATE: 20220830
